FAERS Safety Report 7513391-X (Version None)
Quarter: 2011Q2

REPORT INFORMATION
  Report Type: 
  Country: None (occurrence: None)
  Receive Date: 20110531
  Receipt Date: 20110517
  Transmission Date: 20111010
  Serious: Yes (Hospitalization)
  Sender: FDA-Public Use
  Company Number: US-UCBSA-025394

PATIENT
  Sex: Male

DRUGS (1)
  1. CIMZIA [Suspect]
     Indication: CROHN'S DISEASE
     Dosage: HAS HAD NO CIMZIA FOR 2 MONTHS
     Route: 058
     Dates: start: 20101210, end: 20110101

REACTIONS (11)
  - VISION BLURRED [None]
  - INSOMNIA [None]
  - BLOOD PRESSURE INCREASED [None]
  - DIARRHOEA [None]
  - ABDOMINAL PAIN [None]
  - DIZZINESS [None]
  - NAUSEA [None]
  - MALAISE [None]
  - BACK DISORDER [None]
  - PARAESTHESIA [None]
  - DEHYDRATION [None]
